FAERS Safety Report 16712957 (Version 1)
Quarter: 2019Q3

REPORT INFORMATION
  Report Type: Spontaneous
  Country: IT (occurrence: IT)
  Receive Date: 20190817
  Receipt Date: 20190817
  Transmission Date: 20191004
  Serious: Yes (Life-Threatening, Other)
  Sender: FDA-Public Use
  Company Number: IT-AUROBINDO-AUR-APL-2019-027008

PATIENT

DRUGS (4)
  1. PREGABALIN. [Suspect]
     Active Substance: PREGABALIN
     Indication: ANXIETY
     Dosage: 14 DOSAGE FORM, IN TOTAL
     Route: 048
     Dates: start: 20190312, end: 20190312
  2. DELORAZEPAM [Suspect]
     Active Substance: DELORAZEPAM
     Indication: ANXIETY
     Dosage: 20 DOSAGE FORM, IN TOTAL
     Route: 048
     Dates: start: 20190312, end: 20190312
  3. ZOLPIDEM [Suspect]
     Active Substance: ZOLPIDEM TARTRATE
     Indication: INSOMNIA
     Dosage: 20 DOSAGE FORM, IN TOTAL
     Route: 048
     Dates: start: 20190312, end: 20190312
  4. DEPAKIN [Suspect]
     Active Substance: VALPROATE SODIUM
     Indication: MANIA
     Dosage: 50 DOSAGE FORM, IN TOTAL
     Route: 048
     Dates: start: 20190312, end: 20190312

REACTIONS (3)
  - Hypotension [Recovering/Resolving]
  - Sopor [Recovering/Resolving]
  - Drug abuse [Recovering/Resolving]

NARRATIVE: CASE EVENT DATE: 20190312
